FAERS Safety Report 5847375-4 (Version None)
Quarter: 2008Q3

REPORT INFORMATION
  Report Type: 
  Country: None (occurrence: None)
  Receive Date: 20080813
  Receipt Date: 20080801
  Transmission Date: 20090109
  Serious: Yes (Other)
  Sender: FDA-Public Use
  Company Number: GXKR2008JP07218

PATIENT
  Age: 65 Year
  Sex: Male

DRUGS (16)
  1. CILOSTAZOL [Suspect]
     Indication: ARTERIOSCLEROSIS OBLITERANS
     Dosage: 10 MG,
     Dates: start: 20061101
  2. GLYCYRRHIZIC ACID (GLYCYRRHIZIC ACID) UNKNOWN [Suspect]
     Indication: ALCOHOLIC LIVER DISEASE
     Dosage: 150 MG,
  3. GLYCYRRHIZIC ACID (GLYCYRRHIZIC ACID) UNKNOWN [Suspect]
     Indication: LIVER INJURY
     Dosage: 150 MG,
  4. IMIDAPRIL (IMIDAPRIL) [Concomitant]
  5. OLMESARTAN (OLMESARTAN) [Concomitant]
  6. AROTINOLOL (AROTINOLOL) [Concomitant]
  7. PRAZOSIN GITS [Concomitant]
  8. NIFEDIPINE [Concomitant]
  9. FAMOTIDINE [Concomitant]
  10. DIAZEPAM [Concomitant]
  11. SIMVASTATIN [Concomitant]
  12. VITAMINS (NO INGREDIENTS/SUBSTANCES) [Concomitant]
  13. AMINO ACIDS (NO INGREDIENTS/SUBSTANCES) [Concomitant]
  14. ALINAMIN F (FURSULTIAMINE) [Concomitant]
  15. VITAMEDIN (HYDROXOCOBALAMIN, PYRIDOXINE, HYDROCHLORIDE, THIAMINE HYDRO [Concomitant]
  16. PROHEPARUM (CHOLINE BITARTRATE, CYANOCOBALAMIN, CYSTEINE, INOSITOL, LI [Concomitant]

REACTIONS (7)
  - ARTERIOSCLEROSIS OBLITERANS [None]
  - CARDIAC MURMUR [None]
  - DRUG INTERACTION [None]
  - HYPOKALAEMIA [None]
  - PALPITATIONS [None]
  - PSEUDOALDOSTERONISM [None]
  - TACHYCARDIA [None]
